FAERS Safety Report 5503763-7 (Version None)
Quarter: 2007Q4

REPORT INFORMATION
  Report Type: 
  Country: None (occurrence: None)
  Receive Date: 20071101
  Receipt Date: 20071022
  Transmission Date: 20080405
  Serious: Yes (Disabling)
  Sender: FDA-Public Use
  Company Number: CA-SOLVAY-00207034655

PATIENT
  Age: 19383 Day
  Sex: Male

DRUGS (1)
  1. COVERSYL [Suspect]
     Indication: HYPERTENSION
     Dosage: DAILY DOSE: 4 MILLIGRAM(S)
     Route: 048
     Dates: start: 20071008, end: 20071008

REACTIONS (2)
  - MUSCULAR WEAKNESS [None]
  - MYALGIA [None]
